FAERS Safety Report 4894785-8 (Version None)
Quarter: 2006Q1

REPORT INFORMATION
  Report Type: 
  Country: None (occurrence: None)
  Receive Date: 20060130
  Receipt Date: 20060119
  Transmission Date: 20060701
  Serious: Yes (Death, Hospitalization)
  Sender: FDA-Public Use
  Company Number: US-NOVOPROD-250152

PATIENT

DRUGS (1)
  1. NOVOSEVEN [Suspect]
     Indication: TONSILLAR HAEMORRHAGE
     Dosage: UNK, SINGLE
     Route: 042

REACTIONS (1)
  - SEPSIS [None]
